FAERS Safety Report 4475193-0 (Version None)
Quarter: 2004Q4

REPORT INFORMATION
  Report Type: 
  Country: None (occurrence: None)
  Receive Date: 20041012
  Receipt Date: 20040929
  Transmission Date: 20050328
  Serious: Yes (Other)
  Sender: FDA-Public Use
  Company Number: 2004221488CA

PATIENT
  Age: 31 Year
  Sex: Female
  Weight: 49.4 kg

DRUGS (5)
  1. DEPO-PROVERA [Suspect]
     Indication: CONTRACEPTION
     Dosage: SEE IMAGE
     Route: 030
     Dates: start: 20031201, end: 20031201
  2. DEPO-PROVERA [Suspect]
     Indication: CONTRACEPTION
     Dosage: SEE IMAGE
     Route: 030
     Dates: start: 20040401, end: 20040401
  3. VENTOLIN [Concomitant]
  4. ZYPREXA [Concomitant]
  5. FLOVENT [Concomitant]

REACTIONS (16)
  - ABDOMINAL DISTENSION [None]
  - ANGER [None]
  - BEDRIDDEN [None]
  - BODY DYSMORPHIC DISORDER [None]
  - CONFUSIONAL STATE [None]
  - CRYING [None]
  - DEPRESSION [None]
  - DRUG EFFECT DECREASED [None]
  - FAT TISSUE INCREASED [None]
  - FATIGUE [None]
  - INCREASED APPETITE [None]
  - MORBID THOUGHTS [None]
  - PAIN [None]
  - PANIC ATTACK [None]
  - SCAR [None]
  - WEIGHT FLUCTUATION [None]
